FAERS Safety Report 10412774 (Version 1)
Quarter: 2014Q3

REPORT INFORMATION
  Report Type: Report from Study
  Country: ZA (occurrence: ZA)
  Receive Date: 20140827
  Receipt Date: 20140827
  Transmission Date: 20150326
  Serious: Yes (Other)
  Sender: FDA-Public Use
  Company Number: ZA-BAYER-2014-076280

PATIENT
  Sex: Male

DRUGS (1)
  1. BETAFERON [Suspect]
     Active Substance: INTERFERON BETA-1B

REACTIONS (8)
  - Metal poisoning [Recovered/Resolved]
  - Tongue biting [None]
  - Dizziness [None]
  - Epilepsy [None]
  - Chills [None]
  - Syncope [None]
  - Pyrexia [None]
  - Skin reaction [None]

NARRATIVE: CASE EVENT DATE: 200708
